FAERS Safety Report 8541357-X (Version None)
Quarter: 2012Q3

REPORT INFORMATION
  Report Type: 
  Country: None (occurrence: None)
  Receive Date: 20120726
  Receipt Date: 20110916
  Transmission Date: 20120928
  Serious: No
  Sender: FDA-Public Use
  Company Number: US-ASTRAZENECA-2011SE56011

PATIENT
  Age: 60 Year
  Sex: Female
  Weight: 108.9 kg

DRUGS (1)
  1. SEROQUEL [Suspect]
     Indication: BIPOLAR DISORDER
     Dosage: 100 MG 4 TABLETS 3 TO 4 TIMES A DAY AS REQUIRED
     Route: 048

REACTIONS (6)
  - DRY MOUTH [None]
  - MANIA [None]
  - INSOMNIA [None]
  - WEIGHT INCREASED [None]
  - DRUG DOSE OMISSION [None]
  - OFF LABEL USE [None]
